FAERS Safety Report 11724813 (Version 2)
Quarter: 2016Q1

REPORT INFORMATION
  Report Type: Spontaneous
  Country: US (occurrence: US)
  Receive Date: 20151111
  Receipt Date: 20160203
  Transmission Date: 20160525
  Serious: No
  Sender: FDA-Public Use
  Company Number: US-UCBSA-2015008766

PATIENT
  Sex: Male

DRUGS (2)
  1. VIMPAT [Suspect]
     Active Substance: LACOSAMIDE
     Indication: SEIZURE
     Dosage: 200 MG 2 DAILY; SINCE ABOUT 2 YEARS AGO
  2. KEPPRA [Suspect]
     Active Substance: LEVETIRACETAM
     Indication: SEIZURE
     Dosage: 1000 MG 2 DAILY
     Dates: start: 2010

REACTIONS (2)
  - Partial seizures [Not Recovered/Not Resolved]
  - Fatigue [Not Recovered/Not Resolved]
